FAERS Safety Report 16445789 (Version 1)
Quarter: 2019Q2

REPORT INFORMATION
  Report Type: Spontaneous
  Country: US (occurrence: US)
  Receive Date: 20190508
  Receipt Date: 20190508
  Transmission Date: 20190711
  Serious: Yes (Life-Threatening, Hospitalization)
  Sender: FDA-Public Use
  Company Number: None

PATIENT
  Sex: Female

DRUGS (1)
  1. CLINDAMYCIN. [Suspect]
     Active Substance: CLINDAMYCIN
     Indication: ROOT CANAL INFECTION
     Route: 048
     Dates: start: 20181024

REACTIONS (10)
  - Viral infection [None]
  - Rash generalised [None]
  - Abnormal faeces [None]
  - Apparent death [None]
  - Diarrhoea [None]
  - Abdominal pain upper [None]
  - Pyrexia [None]
  - Chills [None]
  - Full blood count decreased [None]
  - Quality of life decreased [None]
